FAERS Safety Report 21025291 (Version 1)
Quarter: 2022Q2

REPORT INFORMATION
  Report Type: Spontaneous
  Country: BR (occurrence: None)
  Receive Date: 20220630
  Receipt Date: 20220630
  Transmission Date: 20220720
  Serious: Yes (Hospitalization, Other)
  Sender: FDA-Public Use
  Company Number: BR-ROCHE-3122842

PATIENT
  Age: 63 Year
  Sex: Female
  Weight: 47 kg

DRUGS (9)
  1. PERJETA [Suspect]
     Active Substance: PERTUZUMAB
     Indication: Breast cancer
     Route: 042
     Dates: start: 20220324
  2. TRASTUZUMAB-DKST [Suspect]
     Active Substance: TRASTUZUMAB-DKST
     Indication: Breast cancer
     Route: 042
     Dates: start: 20220324
  3. DOCETAXEL [Suspect]
     Active Substance: DOCETAXEL
     Indication: Breast cancer
     Route: 042
     Dates: start: 20220324
  4. CARBOPLATIN [Suspect]
     Active Substance: CARBOPLATIN
     Indication: Breast cancer
     Route: 042
     Dates: start: 20220324
  5. PACLITAXEL [Suspect]
     Active Substance: PACLITAXEL
     Indication: Breast cancer
     Route: 065
     Dates: start: 2022
  6. PALONOSETRON [Concomitant]
     Active Substance: PALONOSETRON
     Route: 042
  7. FOSAPREPITANT [Concomitant]
     Active Substance: FOSAPREPITANT
     Route: 042
  8. DEXAMETHASONE [Concomitant]
     Active Substance: DEXAMETHASONE
     Route: 042
  9. BUPROPION [Concomitant]
     Active Substance: BUPROPION
     Route: 065

REACTIONS (3)
  - COVID-19 [Unknown]
  - Vomiting [Recovered/Resolved]
  - Diarrhoea [Recovered/Resolved]

NARRATIVE: CASE EVENT DATE: 20220401
